FAERS Safety Report 8093220-9 (Version None)
Quarter: 2012Q1

REPORT INFORMATION
  Report Type: 
  Country: None (occurrence: None)
  Receive Date: 20120128
  Receipt Date: 20110901
  Transmission Date: 20120608
  Serious: No
  Sender: FDA-Public Use
  Company Number: US-ABBOTT-11P-163-0850780-00

PATIENT
  Sex: Female

DRUGS (9)
  1. LORTAB [Concomitant]
     Indication: PAIN
  2. VITAMIN D [Concomitant]
     Indication: VITAMIN SUPPLEMENTATION
     Dosage: N
  3. REPLESTA [Concomitant]
     Indication: VITAMIN SUPPLEMENTATION
  4. BIRTH CONTROL [Concomitant]
     Indication: PRODUCT USED FOR UNKNOWN INDICATION
  5. LISINOPRIL [Concomitant]
     Indication: HYPERTENSION
  6. FOLIC ACID [Concomitant]
     Indication: PRODUCT USED FOR UNKNOWN INDICATION
  7. HUMIRA [Suspect]
     Dates: start: 20110201
  8. HUMIRA [Suspect]
     Indication: PSORIATIC ARTHROPATHY
     Dates: start: 20110101, end: 20110101
  9. METHOTREXATE [Concomitant]
     Indication: PSORIATIC ARTHROPATHY

REACTIONS (1)
  - UPPER RESPIRATORY TRACT INFECTION [None]
